FAERS Safety Report 13446677 (Version 1)
Quarter: 2017Q2

REPORT INFORMATION
  Report Type: Spontaneous
  Country: FR (occurrence: FR)
  Receive Date: 20170417
  Receipt Date: 20170417
  Transmission Date: 20170830
  Serious: Yes (Hospitalization)
  Sender: FDA-Public Use
  Company Number: FR-ROCHE-1920287

PATIENT
  Age: 76 Year
  Sex: Female

DRUGS (8)
  1. KARDEGIC [Suspect]
     Active Substance: ASPIRIN LYSINE
     Indication: AORTIC SURGERY
     Dosage: 1-0-0
     Route: 048
  2. PRAVASTATIN. [Concomitant]
     Active Substance: PRAVASTATIN
     Dosage: 0-1-1
     Route: 065
  3. KARDEGIC [Suspect]
     Active Substance: ASPIRIN LYSINE
     Dosage: 1-0-0
     Route: 048
  4. PLAVIX [Suspect]
     Active Substance: CLOPIDOGREL BISULFATE
     Indication: AORTIC SURGERY
     Dosage: 1-0-0
     Route: 065
     Dates: end: 20160827
  5. AMIODARONE [Concomitant]
     Active Substance: AMIODARONE
     Dosage: 1-0-0
     Route: 065
  6. FUROSEMIDE. [Concomitant]
     Active Substance: FUROSEMIDE
     Dosage: 1-0-0
     Route: 065
  7. ACTILYSE [Suspect]
     Active Substance: ALTEPLASE
     Indication: ISCHAEMIC STROKE
     Route: 042
     Dates: start: 20160827, end: 20160827
  8. BISOPROLOL [Concomitant]
     Active Substance: BISOPROLOL
     Dosage: 1-0-1
     Route: 065

REACTIONS (3)
  - Vessel puncture site haematoma [Recovered/Resolved]
  - Anaemia [Recovered/Resolved]
  - Haematoma [Recovered/Resolved]

NARRATIVE: CASE EVENT DATE: 20160827
